FAERS Safety Report 17603949 (Version 2)
Quarter: 2021Q1

REPORT INFORMATION
  Report Type: Spontaneous
  Country: US (occurrence: US)
  Receive Date: 20200331
  Receipt Date: 20210227
  Transmission Date: 20210419
  Serious: Yes (Other)
  Sender: FDA-Public Use
  Company Number: US-CIPLA LTD.-2020US02239

PATIENT

DRUGS (2)
  1. GABAPENTIN. [Suspect]
     Active Substance: GABAPENTIN
     Indication: ARTHRITIS
     Dosage: 2 DOSAGE FORM, BID, (TWO IN THE MORNING, TWO IN THE EVENING)
     Route: 048
  2. DICLOFENAC [Suspect]
     Active Substance: DICLOFENAC
     Indication: ARTHRITIS
     Dosage: UNK, TID
     Route: 061

REACTIONS (8)
  - Chest pain [Unknown]
  - Incorrect dose administered [Unknown]
  - Off label use [Unknown]
  - Cardiac failure congestive [Unknown]
  - Wrong technique in product usage process [Unknown]
  - Pain [Unknown]
  - Atrial fibrillation [Unknown]
  - Product use in unapproved indication [Unknown]
